FAERS Safety Report 5139728-7 (Version None)
Quarter: 2006Q4

REPORT INFORMATION
  Report Type: 
  Country: None (occurrence: None)
  Receive Date: 20061024
  Receipt Date: 20061010
  Transmission Date: 20070319
  Serious: Yes (Other)
  Sender: FDA-Public Use
  Company Number: T200600997

PATIENT
  Age: 78 Year
  Sex: Female
  Weight: 57 kg

DRUGS (3)
  1. OPTIJECT 350 (IOVERSOL ) INJECTION, 350 [Suspect]
     Indication: COMPUTERISED TOMOGRAM
     Dosage: 125 ML, SINGLE, INTRAVENOUS
     Route: 042
     Dates: start: 20060825, end: 20060825
  2. ATORVASTATIN CALCIUM [Concomitant]
  3. DIURETICS TABLET [Concomitant]

REACTIONS (4)
  - BLOOD PRESSURE INCREASED [None]
  - ERYTHEMA [None]
  - LOCALISED OEDEMA [None]
  - PHLEBITIS [None]
